FAERS Safety Report 6132601-7 (Version None)
Quarter: 2009Q1

REPORT INFORMATION
  Report Type: 
  Country: None (occurrence: None)
  Receive Date: 20090324
  Receipt Date: 20090313
  Transmission Date: 20090719
  Serious: Yes (Death)
  Sender: FDA-Public Use
  Company Number: GXKR20009HR03323

PATIENT
  Age: 73 Year
  Sex: Female

DRUGS (4)
  1. CEFUROXIME AXETIL (NGX) (CEFUROXIME) [Suspect]
     Indication: ESCHERICHIA URINARY TRACT INFECTION
     Dosage: 500 MG, BID, ORAL
     Route: 048
  2. FUROSEMIDE (NGX) (FUROSEMIDE) [Suspect]
     Indication: RENAL FAILURE CHRONIC
  3. LISINOPRIL [Concomitant]
  4. CALCIUM CARBONATE (CALCIUM CARBONATE) [Concomitant]

REACTIONS (13)
  - ARTHRALGIA [None]
  - DRUG INEFFECTIVE [None]
  - DRUG INTERACTION [None]
  - GENERAL PHYSICAL HEALTH DETERIORATION [None]
  - GRANULOCYTOPENIA [None]
  - HYPERTENSION [None]
  - KERATITIS [None]
  - LEUKOPENIA [None]
  - MULTI-ORGAN FAILURE [None]
  - OESOPHAGITIS HAEMORRHAGIC [None]
  - PROTEIN TOTAL DECREASED [None]
  - STAPHYLOCOCCAL SEPSIS [None]
  - TOXIC EPIDERMAL NECROLYSIS [None]
